FAERS Safety Report 7829083 (Version 2)
Quarter: 2014Q1

REPORT INFORMATION
  Report Type: Spontaneous
  Country: GB (occurrence: GB)
  Receive Date: 20110225
  Receipt Date: 20140116
  Transmission Date: 20141002
  Serious: Yes (Congenital Anomaly)
  Sender: FDA-Public Use
  Company Number: GB-TEVA-267819ISR

PATIENT
  Sex: Male

DRUGS (2)
  1. METHOTREXATE [Suspect]
     Route: 065
  2. SULFASALAZINE [Suspect]
     Route: 065

REACTIONS (5)
  - Developmental delay [Unknown]
  - Ventricular septal defect [Unknown]
  - Low birth weight baby [Unknown]
  - Body height below normal [Not Recovered/Not Resolved]
  - Craniosynostosis [Not Recovered/Not Resolved]
